FAERS Safety Report 6375373-3 (Version None)
Quarter: 2009Q3

REPORT INFORMATION
  Report Type: 
  Country: None (occurrence: None)
  Receive Date: 20090924
  Receipt Date: 20090918
  Transmission Date: 20100115
  Serious: Yes (Death, Other)
  Sender: FDA-Public Use
  Company Number: PHHY2009GB39241

PATIENT
  Age: 44 Year
  Sex: Female

DRUGS (3)
  1. CLOZAPINE [Suspect]
     Indication: PSYCHOTIC DISORDER
     Dosage: UNK
     Route: 048
  2. CLOMIPRAMINE [Suspect]
     Indication: DEPRESSION
     Dosage: UNK
  3. LORAZEPAM [Concomitant]
     Indication: ANXIETY
     Dosage: ONCE DAILY

REACTIONS (3)
  - DEATH [None]
  - DEEP VEIN THROMBOSIS [None]
  - PULMONARY EMBOLISM [None]
